FAERS Safety Report 11207841 (Version 1)
Quarter: 2015Q2

REPORT INFORMATION
  Report Type: Report from Study
  Country: US (occurrence: US)
  Receive Date: 20150622
  Receipt Date: 20150622
  Transmission Date: 20150821
  Serious: No
  Sender: FDA-Public Use
  Company Number: US-ABBVIE-15P-163-1382204-00

PATIENT
  Age: 60 Year
  Sex: Female
  Weight: 81.72 kg

DRUGS (2)
  1. RIBASPHERE [Concomitant]
     Active Substance: RIBAVIRIN
     Indication: PRODUCT USED FOR UNKNOWN INDICATION
  2. VIEKIRA PAK [Suspect]
     Active Substance: DASABUVIR\OMBITASVIR\PARITAPREVIR\RITONAVIR
     Indication: HEPATITIS C
     Dosage: AKE 2 PINK COLORED TABS QAM AND 1 BEIGE COLORED TAB TWICE DAILY (AM + PM)
     Route: 048
     Dates: start: 201503

REACTIONS (3)
  - Emotional disorder [Unknown]
  - Mood altered [Unknown]
  - Crying [Unknown]

NARRATIVE: CASE EVENT DATE: 201503
